FAERS Safety Report 24933997 (Version 1)
Quarter: 2025Q1

REPORT INFORMATION
  Report Type: Report from Study
  Country: CA (occurrence: CA)
  Receive Date: 20250206
  Receipt Date: 20250206
  Transmission Date: 20250408
  Serious: Yes (Death, Other)
  Sender: EXELIXIS
  Company Number: CA-IPSEN Group, Research and Development-2024-07419

PATIENT
  Age: 60 Year
  Sex: Female

DRUGS (6)
  1. CABOMETYX [Suspect]
     Active Substance: CABOZANTINIB S-MALATE
     Indication: Renal cell carcinoma
     Dosage: 40 MG, QD
     Route: 048
     Dates: start: 20240215
  2. LOSARTAN [Concomitant]
     Active Substance: LOSARTAN
     Dosage: 12.5 MG, QD
  3. LEVOTHYROXINE [Concomitant]
     Active Substance: LEVOTHYROXINE
  4. INLYTA [Concomitant]
     Active Substance: AXITINIB
  5. VITAMIN D [Concomitant]
     Active Substance: VITAMIN D NOS
  6. HYDROMORPHONE [Concomitant]
     Active Substance: HYDROMORPHONE
     Dosage: 4.5 MG BID

REACTIONS (1)
  - Malignant neoplasm progression [Fatal]
